FAERS Safety Report 13290415 (Version 1)
Quarter: 2017Q1

REPORT INFORMATION
  Report Type: Report from Study
  Country: None (occurrence: ES)
  Receive Date: 20170302
  Receipt Date: 20170302
  Transmission Date: 20170428
  Serious: Yes (Other)
  Sender: FDA-Public Use
  Company Number: ES-BIOVITRUM-2017ES0220

PATIENT
  Age: 3 Year
  Sex: Male
  Weight: 17.7 kg

DRUGS (2)
  1. ORFADIN [Suspect]
     Active Substance: NITISINONE
     Indication: TYROSINAEMIA
     Dates: start: 20150626, end: 20160613
  2. ORFADIN [Suspect]
     Active Substance: NITISINONE
     Dates: start: 20160614

REACTIONS (5)
  - Petit mal epilepsy [Unknown]
  - Amino acid level decreased [Unknown]
  - Succinylacetone increased [Unknown]
  - Myoclonic epilepsy [Unknown]
  - Alpha 1 foetoprotein increased [Unknown]

NARRATIVE: CASE EVENT DATE: 20160125
